FAERS Safety Report 9668613 (Version 3)
Quarter: 2014Q1

REPORT INFORMATION
  Report Type: Spontaneous
  Country: IT (occurrence: IT)
  Receive Date: 20131105
  Receipt Date: 20140113
  Transmission Date: 20141002
  Serious: Yes (Hospitalization)
  Sender: FDA-Public Use
  Company Number: IT-BRISTOL-MYERS SQUIBB COMPANY-19678333

PATIENT
  Age: 74 Year
  Sex: Male

DRUGS (2)
  1. YERVOY [Suspect]
     Indication: METASTATIC MALIGNANT MELANOMA
     Dosage: 5MG/ML INFUSION SOLUTION
     Route: 042
     Dates: start: 20130729, end: 20130909
  2. DELTACORTENE [Concomitant]
     Dosage: 25MG TABS
     Route: 048
     Dates: start: 20130818, end: 20130930

REACTIONS (1)
  - Atrial fibrillation [Recovered/Resolved]
